FAERS Safety Report 7546962-5 (Version None)
Quarter: 2011Q2

REPORT INFORMATION
  Report Type: 
  Country: None (occurrence: None)
  Receive Date: 20110607
  Receipt Date: 20110525
  Transmission Date: 20111010
  Serious: Yes (Other)
  Sender: FDA-Public Use
  Company Number: 2011AP001073

PATIENT
  Age: 83 Year
  Sex: Male

DRUGS (2)
  1. AMLODIPINE BESYLATE [Suspect]
     Indication: PRODUCT USED FOR UNKNOWN INDICATION
     Dosage: 5 MG; PO, 10 MG; PO; QD
     Route: 048
     Dates: start: 20100916, end: 20101210
  2. AMLODIPINE BESYLATE [Suspect]
     Indication: PRODUCT USED FOR UNKNOWN INDICATION
     Dosage: 5 MG; PO, 10 MG; PO; QD
     Route: 048
     Dates: start: 20100902, end: 20100910

REACTIONS (2)
  - OEDEMA PERIPHERAL [None]
  - URETHRAL STENOSIS [None]
